FAERS Safety Report 16356953 (Version 2)
Quarter: 2019Q2

REPORT INFORMATION
  Report Type: Spontaneous
  Country: US (occurrence: US)
  Receive Date: 20190527
  Receipt Date: 20190529
  Transmission Date: 20190711
  Serious: No
  Sender: FDA-Public Use
  Company Number: US-SHIRE-US201917106

PATIENT
  Sex: Female

DRUGS (2)
  1. XIIDRA [Suspect]
     Active Substance: LIFITEGRAST
     Indication: DRY EYE
     Dosage: 1 GTT DROPS, 2X/DAY:BID
     Route: 047
     Dates: start: 201905
  2. OASIS TEARS [Concomitant]
     Active Substance: GLYCERIN
     Indication: PRODUCT USED FOR UNKNOWN INDICATION

REACTIONS (5)
  - Instillation site pain [Recovering/Resolving]
  - Inappropriate schedule of product administration [Recovered/Resolved]
  - Instillation site lacrimation [Unknown]
  - Instillation site inflammation [Recovering/Resolving]
  - Instillation site irritation [Recovering/Resolving]

NARRATIVE: CASE EVENT DATE: 201905
